FAERS Safety Report 5728656-1 (Version None)
Quarter: 2008Q2

REPORT INFORMATION
  Report Type: 
  Country: None (occurrence: None)
  Receive Date: 20080506
  Receipt Date: 20080505
  Transmission Date: 20081010
  Serious: Yes (Other)
  Sender: FDA-Public Use
  Company Number: HR-BRISTOL-MYERS SQUIBB COMPANY-14175715

PATIENT
  Age: 69 Year
  Sex: Male

DRUGS (5)
  1. PACLITAXEL [Suspect]
     Indication: LUNG NEOPLASM MALIGNANT
     Route: 042
  2. CISPLATIN [Concomitant]
  3. KYTRIL [Concomitant]
  4. PEPTORAN [Concomitant]
  5. SOLU-MEDROL [Concomitant]

REACTIONS (3)
  - BACK PAIN [None]
  - CHEST PAIN [None]
  - HYPERHIDROSIS [None]
